FAERS Safety Report 7129849-1 (Version None)
Quarter: 2010Q4

REPORT INFORMATION
  Report Type: 
  Country: None (occurrence: None)
  Receive Date: 20101130
  Receipt Date: 20100917
  Transmission Date: 20110411
  Serious: Yes (Other)
  Sender: FDA-Public Use
  Company Number: US-AMGEN-QUU438959

PATIENT

DRUGS (9)
  1. NPLATE [Suspect]
     Indication: IDIOPATHIC THROMBOCYTOPENIC PURPURA
     Dosage: 3 A?G/KG, UNK
     Dates: start: 20100910
  2. ATENOLOL [Concomitant]
     Dosage: UNK UNK, UNK
  3. DOCUSATE [Concomitant]
     Dosage: UNK UNK, UNK
  4. ACETAMINOPHEN AND HYDROCODONE BITARTRATE [Concomitant]
     Dosage: UNK UNK, UNK
  5. INSULIN [Concomitant]
     Dosage: UNK UNK, UNK
  6. OMEPRAZOLE [Concomitant]
     Dosage: UNK UNK, UNK
  7. PREDNISONE [Concomitant]
     Dosage: UNK UNK, UNK
  8. TEMAZEPAM [Concomitant]
     Dosage: UNK UNK, UNK
  9. VALSARTAN [Concomitant]
     Dosage: UNK UNK, UNK

REACTIONS (1)
  - DRUG INEFFECTIVE [None]
